FAERS Safety Report 16985017 (Version 2)
Quarter: 2019Q4

REPORT INFORMATION
  Report Type: Spontaneous
  Country: JP (occurrence: JP)
  Receive Date: 20191101
  Receipt Date: 20191111
  Transmission Date: 20200122
  Serious: Yes (Other)
  Sender: FDA-Public Use
  Company Number: JP-PFIZER INC-2019448547

PATIENT
  Age: 8 Decade
  Sex: Male

DRUGS (1)
  1. BESPONSA [Suspect]
     Active Substance: INOTUZUMAB OZOGAMICIN
     Indication: ACUTE LYMPHOCYTIC LEUKAEMIA
     Dosage: 1 MG/BODY, CYCLIC
     Route: 041
     Dates: start: 20191011

REACTIONS (2)
  - Herpes zoster [Unknown]
  - Bone marrow failure [Unknown]
